FAERS Safety Report 9380891 (Version 2)
Quarter: 2013Q3

REPORT INFORMATION
  Report Type: Spontaneous
  Country: US (occurrence: US)
  Receive Date: 20130703
  Receipt Date: 20130708
  Transmission Date: 20140515
  Serious: Yes (Hospitalization)
  Sender: FDA-Public Use
  Company Number: US-AMGEN-USASP2013029909

PATIENT
  Age: 85 Year
  Sex: Female
  Weight: 63.95 kg

DRUGS (3)
  1. ENBREL [Suspect]
     Indication: RHEUMATOID ARTHRITIS
     Dosage: 50 MG, QWK
     Route: 058
     Dates: start: 20121102, end: 20121128
  2. METHOTREXATE [Suspect]
     Indication: RHEUMATOID ARTHRITIS
     Dosage: 15 MG, QWK (8 TABLETS WEEKLY)
     Route: 048
     Dates: start: 20051220
  3. COUMADIN                           /00014802/ [Concomitant]
     Dosage: UNK

REACTIONS (6)
  - Epistaxis [Recovered/Resolved]
  - Stoma site haemorrhage [Recovered/Resolved]
  - Anaemia [Recovered/Resolved]
  - Thrombocytopenia [Recovered/Resolved]
  - Leukopenia [Unknown]
  - Rheumatoid arthritis [Not Recovered/Not Resolved]
